FAERS Safety Report 16520450 (Version 2)
Quarter: 2019Q3

REPORT INFORMATION
  Report Type: Report from Study
  Country: US (occurrence: US)
  Receive Date: 20190702
  Receipt Date: 20190715
  Transmission Date: 20191004
  Serious: No
  Sender: FDA-Public Use
  Company Number: US-SA-2019SA178558

PATIENT
  Age: 49 Year
  Sex: Female

DRUGS (15)
  1. SARILUMAB [Suspect]
     Active Substance: SARILUMAB
     Indication: RHEUMATOID ARTHRITIS
     Dosage: 200 MG, QOW
     Route: 058
     Dates: start: 20190607, end: 20190705
  2. ACETIC ACID. [Concomitant]
     Active Substance: ACETIC ACID
  3. HYDROCODONE BITARTRATE AND ACETAMINOPHEN [Concomitant]
     Active Substance: ACETAMINOPHEN\HYDROCODONE BITARTRATE
  4. CHANTIX [Concomitant]
     Active Substance: VARENICLINE TARTRATE
  5. FOLIC ACID. [Concomitant]
     Active Substance: FOLIC ACID
  6. LYRICA [Concomitant]
     Active Substance: PREGABALIN
  7. OXYCODONE [Concomitant]
     Active Substance: OXYCODONE
  8. ACTEMRA [Concomitant]
     Active Substance: TOCILIZUMAB
  9. MINOCYCLINE [Concomitant]
     Active Substance: MINOCYCLINE HYDROCHLORIDE
  10. TRAZODONE [Concomitant]
     Active Substance: TRAZODONE HYDROCHLORIDE
  11. TIZANIDINE. [Concomitant]
     Active Substance: TIZANIDINE
  12. PREDNISONE. [Concomitant]
     Active Substance: PREDNISONE
  13. SINGULAIR [Concomitant]
     Active Substance: MONTELUKAST SODIUM
  14. DULOXETINE. [Concomitant]
     Active Substance: DULOXETINE
  15. METHYLPREDNISOLONE. [Concomitant]
     Active Substance: METHYLPREDNISOLONE

REACTIONS (7)
  - Urticaria [Unknown]
  - Erythema [Recovered/Resolved]
  - Injection site swelling [Unknown]
  - Injection site reaction [Recovered/Resolved]
  - Pruritus [Unknown]
  - Injection site hypersensitivity [Unknown]
  - Swelling [Recovered/Resolved]

NARRATIVE: CASE EVENT DATE: 201906
